FAERS Safety Report 7549685-1 (Version None)
Quarter: 2011Q2

REPORT INFORMATION
  Report Type: 
  Country: None (occurrence: None)
  Receive Date: 20110609
  Receipt Date: 20110524
  Transmission Date: 20111010
  Serious: Yes (Hospitalization, Other)
  Sender: FDA-Public Use
  Company Number: 2011MA006484

PATIENT
  Age: 70 Year
  Sex: Female

DRUGS (7)
  1. ATENOLOL [Concomitant]
  2. SERTRALINE HYDROCHLORIDE [Concomitant]
  3. ACETAMINOPHEN AND CODEINE PHOSPHATE [Suspect]
     Indication: MIGRAINE
     Dosage: 330 MG
  4. PHENYTOIN [Concomitant]
  5. CLONAZEPAM [Concomitant]
  6. ENALAPRIL MALEATE [Concomitant]
  7. PHENERGAN HCL [Concomitant]

REACTIONS (1)
  - LIVER INJURY [None]
